FAERS Safety Report 25350975 (Version 2)
Quarter: 2025Q4

REPORT INFORMATION
  Report Type: Spontaneous
  Country: EU (occurrence: EU)
  Receive Date: 20250523
  Receipt Date: 20251225
  Transmission Date: 20260118
  Serious: Yes (Other)
  Sender: AUROBINDO
  Company Number: EU-GRUNENTHAL-2025-106278

PATIENT
  Age: 83 Year
  Sex: Female

DRUGS (9)
  1. DULOXETINE [Interacting]
     Active Substance: DULOXETINE
     Indication: Product used for unknown indication
     Dosage: 60 MILLIGRAM, ONCE A DAY(60 MILLIGRAM, 1/DAY)
     Route: 065
  2. TRAMADOL HYDROCHLORIDE [Interacting]
     Active Substance: TRAMADOL HYDROCHLORIDE
     Indication: Product used for unknown indication
     Dosage: 300 MILLIGRAM, ONCE A DAY(300 MILLIGRAM, 1/DAY)
     Route: 065
  3. TRAMADOL HYDROCHLORIDE [Interacting]
     Active Substance: TRAMADOL HYDROCHLORIDE
     Dosage: 100 MILLIGRAM, ONCE A DAY(100 MILLIGRAM, 1/DAY)
     Route: 065
  4. TRAMADOL HYDROCHLORIDE [Interacting]
     Active Substance: TRAMADOL HYDROCHLORIDE
     Dosage: 75 MILLIGRAM, ONCE A DAY(75 MILLIGRAM, 1/DAY)
     Route: 065
  5. TRAMADOL HYDROCHLORIDE [Interacting]
     Active Substance: TRAMADOL HYDROCHLORIDE
     Dosage: 50 MILLIGRAM, ONCE A DAY(50 MILLIGRAM, 1/DAY)
     Route: 065
  6. TRAMADOL HYDROCHLORIDE [Interacting]
     Active Substance: TRAMADOL HYDROCHLORIDE
     Dosage: 25 MILLIGRAM, ONCE A DAY(25 MILLIGRAM, 1/DAY)
     Route: 065
  7. TRAMADOL HYDROCHLORIDE [Interacting]
     Active Substance: TRAMADOL HYDROCHLORIDE
     Dosage: 15 MILLIGRAM, ONCE A DAY(15 MILLIGRAM, 1/DAY)
     Route: 065
  8. TRAMADOL HYDROCHLORIDE [Interacting]
     Active Substance: TRAMADOL HYDROCHLORIDE
     Dosage: 10 MILLIGRAM, ONCE A DAY(10 MILLIGRAM, 1/DAY)
     Route: 065
  9. TRAMADOL HYDROCHLORIDE [Interacting]
     Active Substance: TRAMADOL HYDROCHLORIDE
     Dosage: 5 MILLIGRAM, ONCE A DAY(5 MILLIGRAM, 1/DAY)
     Route: 065

REACTIONS (6)
  - Drug dependence [Recovering/Resolving]
  - Delirium [Recovering/Resolving]
  - Dysarthria [Recovering/Resolving]
  - Depressed mood [Recovering/Resolving]
  - Drug withdrawal syndrome [Recovering/Resolving]
  - Drug interaction [Recovering/Resolving]
